FAERS Safety Report 21098720 (Version 1)
Quarter: 2022Q3

REPORT INFORMATION
  Report Type: Report from Study
  Country: JP (occurrence: JP)
  Receive Date: 20220719
  Receipt Date: 20220719
  Transmission Date: 20221027
  Serious: Yes (Other)
  Sender: FDA-Public Use
  Company Number: JP-ASTELLAS-2022JP010104

PATIENT
  Age: 59 Year
  Sex: Male
  Weight: 62.1 kg

DRUGS (14)
  1. ENFORTUMAB VEDOTIN [Suspect]
     Active Substance: ENFORTUMAB VEDOTIN
     Indication: Neoplasm malignant
     Dosage: 1.25 MG/KG, WEEKLY FOR 3 CONSECUTIVE WEEKS FOLLOWED BY 1 WEEK REST
     Route: 065
     Dates: start: 20220524, end: 20220621
  2. LANSOPRAZOLE [Concomitant]
     Active Substance: LANSOPRAZOLE
     Indication: Gastritis prophylaxis
     Dosage: UNK UNK, UNKNOWN FREQ.
     Route: 048
     Dates: start: 20220111
  3. LOXOPROFEN [Concomitant]
     Active Substance: LOXOPROFEN
     Indication: Tumour pain
     Dosage: UNK UNK, UNKNOWN FREQ.
     Route: 048
     Dates: start: 20220111
  4. HEPARINOID [Concomitant]
     Indication: Dry skin prophylaxis
     Dosage: UNK UNK, UNKNOWN FREQ.
     Route: 050
     Dates: start: 20220125
  5. CALONAL [Concomitant]
     Active Substance: ACETAMINOPHEN
     Indication: Tumour pain
     Dosage: UNK UNK, UNKNOWN FREQ.
     Route: 048
     Dates: start: 20220201
  6. MIYA-BM [Concomitant]
     Active Substance: CLOSTRIDIUM BUTYRICUM SPORES STRAIN M-55
     Indication: Constipation prophylaxis
     Dosage: UNK UNK, UNKNOWN FREQ.
     Route: 048
     Dates: start: 20220301
  7. MAGNESIUM OXIDE [Concomitant]
     Active Substance: MAGNESIUM OXIDE
     Indication: Constipation prophylaxis
     Dosage: UNK UNK, UNKNOWN FREQ.
     Route: 048
     Dates: start: 202204
  8. DAYVIGO [Concomitant]
     Active Substance: LEMBOREXANT
     Indication: Insomnia
     Dosage: UNK UNK, UNKNOWN FREQ.
     Route: 048
     Dates: start: 20220421
  9. Oxinorm [Concomitant]
     Indication: Tumour pain
     Dosage: UNK UNK, UNKNOWN FREQ.
     Route: 048
     Dates: start: 20220521
  10. OXYCODONE [Concomitant]
     Active Substance: OXYCODONE
     Indication: Tumour pain
     Dosage: UNK UNK, UNKNOWN FREQ.
     Route: 048
     Dates: start: 20220524
  11. Novamin [Concomitant]
     Indication: Prophylaxis of nausea and vomiting
     Dosage: UNK UNK, UNKNOWN FREQ.
     Route: 048
     Dates: start: 20220621
  12. LOPERAMIDE [Concomitant]
     Active Substance: LOPERAMIDE
     Indication: Neoplasm malignant
     Dosage: UNK UNK, UNKNOWN FREQ.
     Route: 048
     Dates: start: 20220626
  13. ZOLEDRONIC ACID ANHYDROUS [Concomitant]
     Active Substance: ZOLEDRONIC ACID ANHYDROUS
     Indication: Hypercalcaemia
     Dosage: UNK UNK, UNKNOWN FREQ.
     Route: 042
     Dates: start: 20220627
  14. LEVOFLOXACIN HEMIHYDRATE [Concomitant]
     Active Substance: LEVOFLOXACIN
     Indication: Escherichia test positive
     Dosage: UNK UNK, UNKNOWN FREQ.
     Route: 065
     Dates: start: 20220630

REACTIONS (1)
  - Cystitis noninfective [Recovering/Resolving]

NARRATIVE: CASE EVENT DATE: 20220703
